FAERS Safety Report 6504508-4 (Version None)
Quarter: 2009Q4

REPORT INFORMATION
  Report Type: 
  Country: None (occurrence: None)
  Receive Date: 20091215
  Receipt Date: 20091208
  Transmission Date: 20100525
  Serious: Yes (Hospitalization)
  Sender: FDA-Public Use
  Company Number: TPA2009A04092

PATIENT
  Sex: Female
  Weight: 49.8957 kg

DRUGS (2)
  1. ACTOS [Suspect]
     Indication: DRUG USE FOR UNKNOWN INDICATION
     Dosage: UNK, UNNOWN, PER ORAL
     Route: 048
  2. METFORMIN [Concomitant]

REACTIONS (4)
  - DIABETIC KETOACIDOSIS [None]
  - GASTRIC HAEMORRHAGE [None]
  - VOMITING [None]
  - WEIGHT DECREASED [None]
